FAERS Safety Report 8428024-8 (Version None)
Quarter: 2012Q2

REPORT INFORMATION
  Report Type: 
  Country: None (occurrence: None)
  Receive Date: 20120611
  Receipt Date: 20120531
  Transmission Date: 20120825
  Serious: Yes (Disabling, Other)
  Sender: FDA-Public Use
  Company Number: AU-ELI_LILLY_AND_COMPANY-AU201206001979

PATIENT
  Sex: Male

DRUGS (4)
  1. LANTUS [Concomitant]
     Dosage: UNK
     Dates: start: 20111201
  2. BYETTA [Suspect]
     Indication: TYPE 2 DIABETES MELLITUS
     Dosage: 10 UG, BID
     Dates: start: 20111013
  3. METFORMIN HCL [Concomitant]
  4. NOVORAPID [Concomitant]
     Dosage: UNK
     Dates: start: 20111201

REACTIONS (3)
  - BLINDNESS UNILATERAL [None]
  - OPTIC NERVE DISORDER [None]
  - BLOOD GLUCOSE INCREASED [None]
